FAERS Safety Report 21856302 (Version 1)
Quarter: 2023Q1

REPORT INFORMATION
  Report Type: Spontaneous
  Country: US (occurrence: US)
  Receive Date: 20230112
  Receipt Date: 20230112
  Transmission Date: 20230418
  Serious: Yes (Death, Hospitalization)
  Sender: FDA-Public Use
  Company Number: US-BAYER-2023A003278

PATIENT
  Age: 58 Year
  Sex: Male

DRUGS (4)
  1. RIVAROXABAN [Suspect]
     Active Substance: RIVAROXABAN
     Indication: Product used for unknown indication
     Route: 048
  2. BUPROPION [Suspect]
     Active Substance: BUPROPION
     Route: 048
  3. METOPROLOL [Suspect]
     Active Substance: METOPROLOL
     Route: 048
  4. SERTRALINE [Suspect]
     Active Substance: SERTRALINE HYDROCHLORIDE
     Route: 048

REACTIONS (1)
  - Toxicity to various agents [Fatal]
